FAERS Safety Report 25360258 (Version 1)
Quarter: 2025Q2

REPORT INFORMATION
  Report Type: Spontaneous
  Country: US (occurrence: US)
  Receive Date: 20250527
  Receipt Date: 20250527
  Transmission Date: 20250717
  Serious: No
  Sender: ACCORD
  Company Number: US-Accord-428220

PATIENT
  Sex: Female

DRUGS (13)
  1. METHOTREXATE [Suspect]
     Active Substance: METHOTREXATE
     Indication: Immunosuppressant drug therapy
     Dates: start: 2010, end: 2011
  2. ASPIRIN [Concomitant]
     Active Substance: ASPIRIN
  3. BARACLUDE [Concomitant]
     Active Substance: ENTECAVIR
  4. CARVEDILOL [Concomitant]
     Active Substance: CARVEDILOL
  5. ELAVIL [Concomitant]
     Active Substance: AMITRIPTYLINE HYDROCHLORIDE
  6. GLYCOLAX [Concomitant]
     Active Substance: POLYETHYLENE GLYCOL 3350
  7. HIPREX [Concomitant]
     Active Substance: METHENAMINE HIPPURATE
  8. IMMUNOGLOBULIN [Concomitant]
  9. RESTASIS [Concomitant]
     Active Substance: CYCLOSPORINE
  10. RITUXAN [Concomitant]
     Active Substance: RITUXIMAB
  11. TYLENOL [Concomitant]
     Active Substance: ACETAMINOPHEN
  12. ZETIA [Concomitant]
     Active Substance: EZETIMIBE
  13. ZYRTEC [Concomitant]
     Active Substance: CETIRIZINE HYDROCHLORIDE

REACTIONS (1)
  - Drug intolerance [Unknown]
